FAERS Safety Report 9518069 (Version 2)
Quarter: 2013Q3

REPORT INFORMATION
  Report Type: Spontaneous
  Country: US (occurrence: US)
  Receive Date: 20130912
  Receipt Date: 20130919
  Transmission Date: 20140515
  Serious: Yes (Other)
  Sender: FDA-Public Use
  Company Number: US-RB-057794-13

PATIENT
  Age: 42 Year
  Sex: Female

DRUGS (3)
  1. MUCINEX FAST MAX ADULT COLD + SINUS [Suspect]
     Indication: MULTIPLE ALLERGIES
     Dosage: 2 TABLETS EVERY 4 HOURS.
     Route: 048
     Dates: start: 20130903
  2. MUCINEX FAST MAX ADULT COLD + SINUS [Suspect]
  3. MUCINEX FAST MAX ADULT COLD + SINUS [Suspect]

REACTIONS (4)
  - VIIth nerve paralysis [Recovered/Resolved]
  - Headache [Recovered/Resolved]
  - Speech disorder [Recovered/Resolved]
  - Off label use [Recovered/Resolved]
